FAERS Safety Report 16182925 (Version 9)
Quarter: 2019Q3

REPORT INFORMATION
  Report Type: Report from Study
  Country: CA (occurrence: CA)
  Receive Date: 20190411
  Receipt Date: 20190709
  Transmission Date: 20191004
  Serious: Yes (Other)
  Sender: FDA-Public Use
  Company Number: CA-ROCHE-2301920

PATIENT
  Sex: Male

DRUGS (8)
  1. OCREVUS [Suspect]
     Active Substance: OCRELIZUMAB
     Indication: PRIMARY PROGRESSIVE MULTIPLE SCLEROSIS
     Dosage: 300 MG AT DAY 0 AND 14, THEN 600 MG EVERY 6 MONTH
     Route: 042
     Dates: start: 20180517
  2. BACLOFEN. [Concomitant]
     Active Substance: BACLOFEN
     Dosage: ONGOING YES
     Route: 065
  3. EFFEXOR [Concomitant]
     Active Substance: VENLAFAXINE HYDROCHLORIDE
     Indication: DEPRESSION
     Dosage: ONGOING YES
     Route: 065
  4. NITROFURANTOIN. [Concomitant]
     Active Substance: NITROFURANTOIN
  5. OCREVUS [Suspect]
     Active Substance: OCRELIZUMAB
     Dosage: 500ML
     Route: 042
     Dates: start: 20180517
  6. GABAPENTIN. [Concomitant]
     Active Substance: GABAPENTIN
     Dosage: ONGOING YES
     Route: 065
  7. ATIVAN [Concomitant]
     Active Substance: LORAZEPAM
     Dosage: ONGOING: YES
     Route: 065
  8. ZOPICLONE [Concomitant]
     Active Substance: ZOPICLONE
     Dosage: ONGOING YES
     Route: 065

REACTIONS (2)
  - Infection [Unknown]
  - Urinary tract infection [Not Recovered/Not Resolved]

NARRATIVE: CASE EVENT DATE: 2019
